FAERS Safety Report 8155146-1 (Version None)
Quarter: 2012Q1

REPORT INFORMATION
  Report Type: 
  Country: None (occurrence: None)
  Receive Date: 20120221
  Receipt Date: 20120113
  Transmission Date: 20120608
  Serious: Yes (Hospitalization)
  Sender: FDA-Public Use
  Company Number: PHHO2012FR001099

PATIENT
  Age: 78 Year
  Sex: Female
  Weight: 60 kg

DRUGS (7)
  1. LASIX [Concomitant]
     Dosage: UNK
  2. ANTIANAEMIA DRUGS [Concomitant]
     Dosage: UNK
  3. ESOMEPRAZOLE MAGNESIUM [Concomitant]
     Dosage: UNK
     Dates: start: 20110802
  4. TEMSIROLIMUS [Concomitant]
     Indication: PROPHYLAXIS AGAINST TRANSPLANT REJECTION
     Dosage: 5 MG, QD
     Route: 002
     Dates: start: 20110710
  5. NEORAL [Suspect]
     Dosage: 175 MG, QD
     Route: 002
     Dates: start: 20110715
  6. MYCOPHENOLATE MOFETIL [Concomitant]
     Indication: PROPHYLAXIS AGAINST TRANSPLANT REJECTION
     Dosage: 1 G, QD
     Route: 002
     Dates: start: 20110715
  7. VALGANCICLOVIR [Concomitant]
     Dosage: 450 MG, UNK
     Dates: start: 20110730

REACTIONS (5)
  - PYELONEPHRITIS ACUTE [None]
  - OVERDOSE [None]
  - RENAL FAILURE ACUTE [None]
  - LYMPHOCELE [None]
  - DEEP VEIN THROMBOSIS [None]
